FAERS Safety Report 7319597-7 (Version None)
Quarter: 2011Q1

REPORT INFORMATION
  Report Type: 
  Country: None (occurrence: None)
  Receive Date: 20110228
  Receipt Date: 20100607
  Transmission Date: 20110831
  Serious: No
  Sender: FDA-Public Use
  Company Number: A0863341A

PATIENT
  Age: 36 Year
  Sex: Female

DRUGS (4)
  1. AVONEX [Concomitant]
  2. PAXIL [Concomitant]
  3. LAMICTAL [Suspect]
     Indication: DEPRESSION
     Dosage: 100MG PER DAY
     Route: 048
     Dates: start: 20080101
  4. TRAZODONE [Concomitant]

REACTIONS (1)
  - COORDINATION ABNORMAL [None]
